FAERS Safety Report 17969195 (Version 2)
Quarter: 2022Q2

REPORT INFORMATION
  Report Type: Spontaneous
  Country: US (occurrence: US)
  Receive Date: 20200701
  Receipt Date: 20220614
  Transmission Date: 20220720
  Serious: No
  Sender: FDA-Public Use
  Company Number: US-PFM-2020-03362

PATIENT
  Sex: Female
  Weight: 4.989 kg

DRUGS (2)
  1. HEMANGEOL [Suspect]
     Active Substance: PROPRANOLOL HYDROCHLORIDE
     Indication: Infantile haemangioma
     Dosage: 2 ML, BID (2/DAY)
     Route: 065
  2. HEMANGEOL [Suspect]
     Active Substance: PROPRANOLOL HYDROCHLORIDE
     Dosage: 2 ML, TID (3/DAY)
     Route: 065

REACTIONS (5)
  - Feeling hot [Unknown]
  - Appetite disorder [Unknown]
  - Irritability [Unknown]
  - Off label use [Unknown]
  - Product use issue [Unknown]
